FAERS Safety Report 5959089-0 (Version None)
Quarter: 2008Q4

REPORT INFORMATION
  Report Type: 
  Country: None (occurrence: None)
  Receive Date: 20081120
  Receipt Date: 20071107
  Transmission Date: 20090506
  Serious: No
  Sender: FDA-Public Use
  Company Number: A0692274A

PATIENT
  Age: 27 Year
  Sex: Female

DRUGS (2)
  1. WELLBUTRIN SR [Suspect]
     Dosage: 100MG TWICE PER DAY
     Route: 048
     Dates: start: 20071001
  2. ALBUTEROL [Concomitant]

REACTIONS (1)
  - DEHYDRATION [None]
